FAERS Safety Report 21083503 (Version 1)
Quarter: 2022Q3

REPORT INFORMATION
  Report Type: Spontaneous
  Country: US (occurrence: None)
  Receive Date: 20220714
  Receipt Date: 20220714
  Transmission Date: 20221026
  Serious: Yes (Hospitalization)
  Sender: FDA-Public Use
  Company Number: None

PATIENT
  Age: 77 Year
  Sex: Male

DRUGS (1)
  1. SIMVASTATIN [Suspect]
     Active Substance: SIMVASTATIN
     Indication: Hyperlipidaemia
     Dosage: FREQUENCY : AT BEDTIME;?
     Route: 048
     Dates: end: 20211210

REACTIONS (4)
  - Blood creatine phosphokinase increased [None]
  - Myositis [None]
  - Myalgia [None]
  - Back pain [None]

NARRATIVE: CASE EVENT DATE: 20220529
